FAERS Safety Report 8372140-6 (Version None)
Quarter: 2012Q2

REPORT INFORMATION
  Report Type: 
  Country: None (occurrence: None)
  Receive Date: 20120521
  Receipt Date: 20120510
  Transmission Date: 20120825
  Serious: Yes (Hospitalization)
  Sender: FDA-Public Use
  Company Number: US-BIOGENIDEC-2011BI020929

PATIENT
  Age: 45 Year
  Sex: Female

DRUGS (3)
  1. AMANTADINE HCL [Concomitant]
     Indication: FATIGUE
     Dates: start: 20110523
  2. SYNTHROID [Concomitant]
     Indication: HYPOTHYROIDISM
  3. TYSABRI [Suspect]
     Indication: MULTIPLE SCLEROSIS
     Route: 042
     Dates: start: 20100204, end: 20110511

REACTIONS (4)
  - MULTIPLE SCLEROSIS RELAPSE [None]
  - THALASSAEMIA [None]
  - HEPATIC FAILURE [None]
  - ANAEMIA [None]
